FAERS Safety Report 4891036-5 (Version None)
Quarter: 2006Q1

REPORT INFORMATION
  Report Type: 
  Country: None (occurrence: None)
  Receive Date: 20060125
  Receipt Date: 20060117
  Transmission Date: 20060701
  Serious: Yes (Other)
  Sender: FDA-Public Use
  Company Number: 2006AP00333

PATIENT
  Age: 23413 Day
  Sex: Male

DRUGS (6)
  1. PROPOFOL [Suspect]
     Route: 042
     Dates: start: 20051110
  2. FENTANYL [Suspect]
     Dates: start: 20051110
  3. MIDAZOLAM [Suspect]
     Route: 042
     Dates: start: 20051110
  4. TIMOLOL MALEATE [Concomitant]
     Indication: GLAUCOMA
     Route: 047
  5. COVERSYL [Concomitant]
     Indication: ESSENTIAL HYPERTENSION
  6. LIPITOR [Concomitant]
     Indication: METABOLIC DISORDER

REACTIONS (1)
  - DYSURIA [None]
